FAERS Safety Report 14108541 (Version 1)
Quarter: 2017Q4

REPORT INFORMATION
  Report Type: Spontaneous
  Country: IT (occurrence: IT)
  Receive Date: 20171019
  Receipt Date: 20171019
  Transmission Date: 20180321
  Serious: Yes (Other)
  Sender: FDA-Public Use
  Company Number: IT-SA-2017SA199635

PATIENT
  Age: 82 Year
  Sex: Female

DRUGS (11)
  1. METFORMIN [Suspect]
     Active Substance: METFORMIN HYDROCHLORIDE
     Indication: DIABETES MELLITUS
     Route: 048
     Dates: start: 20160101, end: 20161127
  2. GALVUS [Suspect]
     Active Substance: VILDAGLIPTIN
     Route: 048
     Dates: start: 20160101, end: 20161127
  3. VALSARTAN. [Concomitant]
     Active Substance: VALSARTAN
     Route: 065
  4. COUMADIN [Concomitant]
     Active Substance: WARFARIN SODIUM
  5. KCL-RETARD [Concomitant]
     Active Substance: POTASSIUM CHLORIDE
  6. SERTRALINE HYDROCHLORIDE. [Concomitant]
     Active Substance: SERTRALINE HYDROCHLORIDE
     Route: 065
  7. LANTUS [Suspect]
     Active Substance: INSULIN GLARGINE
     Route: 058
     Dates: start: 20161123, end: 20161126
  8. RANITIDINE. [Concomitant]
     Active Substance: RANITIDINE
  9. SINEMET [Concomitant]
     Active Substance: CARBIDOPA\LEVODOPA
     Route: 048
  10. YASNAL [Concomitant]
  11. FUROSEMIDE. [Concomitant]
     Active Substance: FUROSEMIDE
     Route: 048

REACTIONS (5)
  - Hypoglycaemia [Unknown]
  - Presyncope [Unknown]
  - Hyperhidrosis [Unknown]
  - Pallor [Unknown]
  - Hypotension [Unknown]

NARRATIVE: CASE EVENT DATE: 20161127
